FAERS Safety Report 4949155-0 (Version None)
Quarter: 2006Q1

REPORT INFORMATION
  Report Type: 
  Country: None (occurrence: None)
  Receive Date: 20060321
  Receipt Date: 20060217
  Transmission Date: 20060701
  Serious: Yes (Other)
  Sender: FDA-Public Use
  Company Number: US-BRISTOL-MYERS SQUIBB COMPANY-13288659

PATIENT
  Age: 93 Year
  Sex: Female

DRUGS (3)
  1. ENKAID [Suspect]
     Indication: ARRHYTHMIA
     Dosage: DURATION: MORE THAN 10 YEARS
     Route: 048
  2. LANOXIN [Concomitant]
     Dosage: DURATION: 10 YEARS
  3. AMITRIPTYLINE HCL [Concomitant]
     Dosage: DURATION: 10 YEARS

REACTIONS (1)
  - SUPRAVENTRICULAR TACHYCARDIA [None]
